FAERS Safety Report 13822658 (Version 1)
Quarter: 2017Q3

REPORT INFORMATION
  Report Type: Spontaneous
  Country: US (occurrence: US)
  Receive Date: 20170801
  Receipt Date: 20170801
  Transmission Date: 20171127
  Serious: Yes (Hospitalization)
  Sender: FDA-Public Use
  Company Number: US-BIOMARINAP-US-2017-114294

PATIENT
  Age: 7 Year
  Sex: Female
  Weight: 23.9 kg

DRUGS (1)
  1. KUVAN [Suspect]
     Active Substance: SAPROPTERIN DIHYDROCHLORIDE
     Indication: PHENYLKETONURIA
     Dosage: 20 MG/KG, QD
     Route: 048
     Dates: start: 20170510

REACTIONS (3)
  - Myringotomy [Recovered/Resolved]
  - Tonsillectomy [Recovered/Resolved]
  - Adenoidectomy [Recovered/Resolved]

NARRATIVE: CASE EVENT DATE: 20170531
